FAERS Safety Report 12739110 (Version 1)
Quarter: 2016Q3

REPORT INFORMATION
  Report Type: Spontaneous
  Country: US (occurrence: US)
  Receive Date: 20160913
  Receipt Date: 20160913
  Transmission Date: 20161109
  Serious: No
  Sender: FDA-Public Use
  Company Number: US-ASTRAZENECA-2016SE92617

PATIENT
  Age: 24898 Day
  Sex: Male
  Weight: 113.4 kg

DRUGS (7)
  1. SEROQUEL [Suspect]
     Active Substance: QUETIAPINE FUMARATE
     Indication: SLEEP DISORDER
     Dosage: 100MG CUT IN HALF AND 200MG DAILY AT NIGHT
     Route: 048
  2. PHENOBARB [Concomitant]
     Active Substance: PHENOBARBITAL SODIUM
     Indication: EPILEPSY
  3. PRAVASTATIN. [Concomitant]
     Active Substance: PRAVASTATIN
  4. SEROQUEL [Suspect]
     Active Substance: QUETIAPINE FUMARATE
     Indication: SLEEP DISORDER
     Route: 048
  5. TEGRETAL [Concomitant]
     Active Substance: CARBAMAZEPINE
     Indication: EPILEPSY
  6. PROZAC [Concomitant]
     Active Substance: FLUOXETINE HYDROCHLORIDE
     Indication: CRYING
  7. XANAX [Concomitant]
     Active Substance: ALPRAZOLAM
     Indication: CRYING

REACTIONS (4)
  - Product use issue [Unknown]
  - Confusional state [Not Recovered/Not Resolved]
  - Memory impairment [Not Recovered/Not Resolved]
  - Off label use [Unknown]

NARRATIVE: CASE EVENT DATE: 201608
